FAERS Safety Report 4960002-3 (Version None)
Quarter: 2006Q1

REPORT INFORMATION
  Report Type: 
  Country: None (occurrence: None)
  Receive Date: 20060327
  Receipt Date: 20060315
  Transmission Date: 20060701
  Serious: Yes (Other)
  Sender: FDA-Public Use
  Company Number: L06-USA-01021-02

PATIENT
  Age: 24 Year
  Sex: Male

DRUGS (4)
  1. CITALOPRAM [Suspect]
     Indication: OBSESSIVE-COMPULSIVE DISORDER
     Dosage: 5 MG QD
  2. BETAXOLOL [Concomitant]
  3. BUSPIRONE [Concomitant]
  4. VENLAFAXINE [Concomitant]

REACTIONS (2)
  - DYSTONIA [None]
  - GLOSSODYNIA [None]
